FAERS Safety Report 12792608 (Version 1)
Quarter: 2016Q3

REPORT INFORMATION
  Report Type: Spontaneous
  Country: US (occurrence: US)
  Receive Date: 20160928
  Receipt Date: 20160928
  Transmission Date: 20161109
  Serious: No
  Sender: FDA-Public Use
  Company Number: None

PATIENT
  Age: 84 Year
  Sex: Female
  Weight: 92.99 kg

DRUGS (17)
  1. AZITHROMYCIN ANHYDROUS. [Concomitant]
     Active Substance: AZITHROMYCIN ANHYDROUS
  2. ALPRAZOLAM. [Concomitant]
     Active Substance: ALPRAZOLAM
  3. FUROSAMIDE-LASIX-WATER PILL [Concomitant]
  4. VACCINE-PNEUMONIA [Concomitant]
  5. VACCINE-FLU [Concomitant]
  6. PROTONIX [Concomitant]
     Active Substance: PANTOPRAZOLE SODIUM
  7. POTASIUM [Concomitant]
  8. FENTANYL. [Concomitant]
     Active Substance: FENTANYL
  9. LOSARTAN POTASSIUM 100 MG TAB. [Suspect]
     Active Substance: LOSARTAN POTASSIUM
     Indication: HYPERTENSION
     Dosage: 1 PILL DAILY, MOUTH
     Route: 048
     Dates: start: 20160831
  10. ASPRIN [Concomitant]
     Active Substance: ASPIRIN
  11. HYDROXYZINE HCL [Concomitant]
     Active Substance: HYDROXYZINE HYDROCHLORIDE
  12. KETOROLAC [Concomitant]
     Active Substance: KETOROLAC\KETOROLAC TROMETHAMINE
  13. XNAX [Concomitant]
  14. PROCHLORPERAZINE. [Concomitant]
     Active Substance: PROCHLORPERAZINE
  15. DOCUSATE SODIUM. [Concomitant]
     Active Substance: DOCUSATE SODIUM
  16. PANTOPRAZOLE-PROTONIX [Concomitant]
  17. TRAMADOL. [Concomitant]
     Active Substance: TRAMADOL

REACTIONS (6)
  - Rash [None]
  - Eye swelling [None]
  - Skin exfoliation [None]
  - Haemorrhage [None]
  - Dysphagia [None]
  - Visual impairment [None]

NARRATIVE: CASE EVENT DATE: 20160831
